FAERS Safety Report 5000244-4 (Version None)
Quarter: 2006Q2

REPORT INFORMATION
  Report Type: 
  Country: None (occurrence: None)
  Receive Date: 20060511
  Receipt Date: 20050823
  Transmission Date: 20061013
  Serious: Yes (Death, Hospitalization, Other)
  Sender: FDA-Public Use
  Company Number: US-MERCK-0508USA03903

PATIENT
  Age: 89 Year
  Sex: Female
  Weight: 59 kg

DRUGS (11)
  1. VIOXX [Suspect]
     Indication: OSTEOARTHRITIS
     Route: 048
     Dates: start: 20000223, end: 20040322
  2. VIOXX [Suspect]
     Route: 048
     Dates: start: 20000223, end: 20040322
  3. CARDIZEM [Concomitant]
     Route: 065
  4. ZANTAC [Concomitant]
     Route: 065
  5. TYLENOL (CAPLET) [Concomitant]
     Route: 065
  6. ECOTRIN [Concomitant]
     Route: 065
  7. AMBIEN [Concomitant]
     Route: 065
  8. ALTACE [Concomitant]
     Route: 065
  9. DYAZIDE [Concomitant]
     Route: 065
  10. CALCIUM (UNSPECIFIED) [Concomitant]
     Route: 065
  11. DARVOCET-N 100 [Concomitant]
     Route: 065

REACTIONS (25)
  - ABDOMINAL PAIN [None]
  - ACUTE MYOCARDIAL INFARCTION [None]
  - ARTERIOSCLEROSIS MOENCKEBERG-TYPE [None]
  - ARTHROPATHY [None]
  - CARDIAC FAILURE CONGESTIVE [None]
  - CARDIAC FLUTTER [None]
  - CATARACT [None]
  - CEREBROVASCULAR ACCIDENT [None]
  - CHEST PAIN [None]
  - CORONARY ARTERY DISEASE [None]
  - DEHYDRATION [None]
  - DELIRIUM [None]
  - FATIGUE [None]
  - HYPERTENSION [None]
  - LEUKOCYTOSIS [None]
  - NERVOUS SYSTEM DISORDER [None]
  - OEDEMA [None]
  - PALPITATIONS [None]
  - PELVIC DISCOMFORT [None]
  - PSEUDOEXFOLIATION OF LENS CAPSULE [None]
  - RENAL FAILURE [None]
  - RENAL FAILURE ACUTE [None]
  - SKIN ULCER [None]
  - THROMBOCYTHAEMIA [None]
  - ULNA FRACTURE [None]
